FAERS Safety Report 6765621-X (Version None)
Quarter: 2010Q2

REPORT INFORMATION
  Report Type: 
  Country: None (occurrence: None)
  Receive Date: 20100609
  Receipt Date: 20100609
  Transmission Date: 20101027
  Serious: No
  Sender: FDA-Public Use
  Company Number: None

PATIENT
  Age: 74 Year
  Sex: Female
  Weight: 102.9665 kg

DRUGS (1)
  1. VENOFER [Suspect]
     Indication: IRON DEFICIENCY ANAEMIA
     Dosage: 200MG X1 IV
     Route: 042
     Dates: start: 20100503

REACTIONS (3)
  - INFUSION SITE DISCOLOURATION [None]
  - INFUSION SITE DISCOMFORT [None]
  - INFUSION SITE EXTRAVASATION [None]
